FAERS Safety Report 15032091 (Version 1)
Quarter: 2018Q2

REPORT INFORMATION
  Report Type: Report from Study
  Country: ES (occurrence: ES)
  Receive Date: 20180619
  Receipt Date: 20180619
  Transmission Date: 20180711
  Serious: Yes (Other)
  Sender: FDA-Public Use
  Company Number: ES-EISAI MEDICAL RESEARCH-EC-2018-041389

PATIENT
  Age: 62 Year
  Sex: Female

DRUGS (1)
  1. FYCOMPA [Suspect]
     Active Substance: PERAMPANEL
     Indication: RESTLESS LEGS SYNDROME
     Route: 048

REACTIONS (3)
  - Craniocerebral injury [Unknown]
  - Fall [Unknown]
  - Somnambulism [Unknown]
